FAERS Safety Report 7701796-3 (Version None)
Quarter: 2011Q3

REPORT INFORMATION
  Report Type: 
  Country: None (occurrence: None)
  Receive Date: 20110822
  Receipt Date: 20110818
  Transmission Date: 20111222
  Serious: Yes (Life-Threatening, Hospitalization, Disabling)
  Sender: FDA-Public Use
  Company Number: NO-B.I. PHARMACEUTICALS,INC./RIDGEFIELD-2011-SW-00339NO

PATIENT
  Sex: Male

DRUGS (1)
  1. PRADAXA [Suspect]
     Indication: ATRIAL FIBRILLATION
     Dosage: 220 MG
     Route: 048
     Dates: start: 20110301

REACTIONS (1)
  - CEREBRAL ISCHAEMIA [None]
